FAERS Safety Report 5334792-4 (Version None)
Quarter: 2007Q2

REPORT INFORMATION
  Report Type: 
  Country: None (occurrence: None)
  Receive Date: 20070525
  Receipt Date: 20070517
  Transmission Date: 20071010
  Serious: Yes (Other)
  Sender: FDA-Public Use
  Company Number: PHBS2007JP06878

PATIENT
  Age: 73 Year
  Sex: Male
  Weight: 43 kg

DRUGS (5)
  1. RITALIN [Suspect]
     Indication: SOMNOLENCE
     Dosage: 5 MG/DAY
     Route: 048
     Dates: start: 20070413
  2. OXYCONTIN [Concomitant]
     Indication: PAIN
     Dosage: 10 MG/DAY
     Route: 048
     Dates: start: 20070407
  3. OXYCONTIN [Concomitant]
     Dosage: 5 MG/DAY
     Route: 048
     Dates: end: 20070416
  4. FAMOTIDINE [Concomitant]
     Dosage: 10 MG/DAY
     Route: 065
  5. BROTIZOLAM [Concomitant]
     Dosage: 0.25 MG/DAY
     Route: 065

REACTIONS (1)
  - DELIRIUM [None]
